FAERS Safety Report 10372620 (Version 3)
Quarter: 2014Q4

REPORT INFORMATION
  Report Type: Report from Study
  Country: BE (occurrence: BE)
  Receive Date: 20140808
  Receipt Date: 20141016
  Transmission Date: 20150528
  Serious: Yes (Hospitalization)
  Sender: FDA-Public Use
  Company Number: BE-ASTRAZENECA-2014SE56140

PATIENT
  Age: 23289 Day
  Sex: Male

DRUGS (7)
  1. PENTASA [Concomitant]
     Active Substance: MESALAMINE
     Indication: COLITIS ULCERATIVE
     Route: 048
     Dates: start: 200406
  2. TICAGRELOR [Suspect]
     Active Substance: TICAGRELOR
     Indication: THROMBOSIS PROPHYLAXIS
     Route: 048
     Dates: start: 20140213, end: 20140808
  3. EMCONCOR [Concomitant]
     Active Substance: BISOPROLOL FUMARATE
     Route: 048
     Dates: start: 20140213
  4. ACETYLSALICYLIC ACID (NON AZ PRODUCT) [Suspect]
     Active Substance: ASPIRIN
     Indication: THROMBOSIS PROPHYLAXIS
     Route: 048
     Dates: start: 20140213
  5. LIPITOR [Concomitant]
     Active Substance: ATORVASTATIN CALCIUM
     Route: 048
     Dates: start: 20140213
  6. PANTOMED [Concomitant]
     Active Substance: DEXPANTHENOL
     Route: 048
     Dates: start: 200406
  7. PERINDOPRIL [Concomitant]
     Active Substance: PERINDOPRIL
     Route: 048
     Dates: start: 20140213

REACTIONS (5)
  - Cardiac failure chronic [Recovered/Resolved]
  - Iron deficiency anaemia [Recovered/Resolved]
  - Drug-induced liver injury [Not Recovered/Not Resolved]
  - Rectal haemorrhage [Recovered/Resolved]
  - Liver function test abnormal [Not Recovered/Not Resolved]

NARRATIVE: CASE EVENT DATE: 20140605
